FAERS Safety Report 9809020 (Version 4)
Quarter: 2014Q2

REPORT INFORMATION
  Report Type: Report from Study
  Country: AU (occurrence: AU)
  Receive Date: 20140110
  Receipt Date: 20140416
  Transmission Date: 20141212
  Serious: Yes (Disabling, Other)
  Sender: FDA-Public Use
  Company Number: PHHY2014AU002530

PATIENT
  Sex: Male
  Weight: 74 kg

DRUGS (14)
  1. ACLASTA [Suspect]
     Indication: OSTEOPOROSIS
     Dosage: 5 MG/100ML\, YEARLY
     Route: 042
     Dates: start: 20090514
  2. ACLASTA [Suspect]
     Indication: INJURY
     Dosage: 5 MG/100ML\, YEARLY
     Route: 042
     Dates: start: 20100916
  3. ACLASTA [Suspect]
     Dosage: 5 MG/100ML\, YEARLY
     Route: 042
     Dates: start: 20111222
  4. ACLASTA [Suspect]
     Dosage: 5 MG/100ML\, YEARLY
     Route: 042
     Dates: start: 20130124
  5. ZINC [Concomitant]
  6. COD LIVER OIL [Concomitant]
  7. ANTROQUORIL [Concomitant]
     Dosage: 0.2 MG/G, UNK
  8. CARTIA                                  /AUS/ [Concomitant]
     Dosage: 100 MG, QD
  9. DOXYCYCLINE [Concomitant]
     Dosage: 2 DF, QD
     Route: 048
  10. ELOCON [Concomitant]
     Dosage: 15 G, QD
  11. MOVICOL [Concomitant]
     Dosage: UNK UKN, QD
  12. NEXIUM 1-2-3 [Concomitant]
     Dosage: 40 MG, QD
  13. OSTELIN VITAMIN D [Concomitant]
     Dosage: 25 UG, QD
  14. SIMVASTATIN [Concomitant]
     Dosage: 20 MG, QD

REACTIONS (7)
  - Osteonecrosis of jaw [Unknown]
  - Skin cancer [Unknown]
  - Basal cell carcinoma [Unknown]
  - Gastrooesophageal reflux disease [Unknown]
  - Vitamin D decreased [Unknown]
  - Osteopenia [Unknown]
  - Rash [Unknown]
